FAERS Safety Report 7374683-0 (Version None)
Quarter: 2011Q1

REPORT INFORMATION
  Report Type: 
  Country: None (occurrence: None)
  Receive Date: 20110325
  Receipt Date: 20100721
  Transmission Date: 20110831
  Serious: No
  Sender: FDA-Public Use
  Company Number: US-MYLANLABS-2010S1013212

PATIENT
  Age: 49 Year
  Sex: Male
  Weight: 113.4 kg

DRUGS (10)
  1. FENTANYL-100 [Suspect]
     Indication: ARTHRALGIA
     Dosage: CHANGED PATCHES Q2D
     Route: 062
     Dates: start: 20100501, end: 20100712
  2. VENLAFAXINE [Concomitant]
  3. FENTANYL-100 [Suspect]
     Indication: BACK PAIN
     Dosage: CHANGED PATCHES Q2D
     Route: 062
     Dates: start: 20100501, end: 20100712
  4. FLECTOR /00372302/ [Concomitant]
     Indication: PAIN
     Route: 062
  5. ATENOLOL [Concomitant]
  6. TIZANIDINE [Concomitant]
  7. FEXOFENADINE [Concomitant]
  8. AMLODIPINE BESYLATE [Concomitant]
  9. CRESTOR [Concomitant]
  10. FLONASE [Concomitant]

REACTIONS (6)
  - PAROSMIA [None]
  - DRUG EFFECT DECREASED [None]
  - BACK PAIN [None]
  - DRUG WITHDRAWAL SYNDROME [None]
  - DYSGEUSIA [None]
  - ARTHRALGIA [None]
